FAERS Safety Report 8265746-6 (Version None)
Quarter: 2012Q2

REPORT INFORMATION
  Report Type: 
  Country: None (occurrence: None)
  Receive Date: 20120404
  Receipt Date: 20120320
  Transmission Date: 20120825
  Serious: Yes (Other)
  Sender: FDA-Public Use
  Company Number: DSA_55825_2012

PATIENT
  Sex: Female

DRUGS (3)
  1. WELLBUTRIN [Suspect]
     Indication: PRODUCT USED FOR UNKNOWN INDICATION
     Dosage: (DF)
  2. SIMVASTATIN [Concomitant]
  3. LEXAPRO [Concomitant]

REACTIONS (2)
  - HYPERSENSITIVITY [None]
  - SUICIDAL IDEATION [None]
